FAERS Safety Report 7392189-X (Version None)
Quarter: 2011Q2

REPORT INFORMATION
  Report Type: 
  Country: None (occurrence: None)
  Receive Date: 20110404
  Receipt Date: 20110328
  Transmission Date: 20111010
  Serious: Yes (Other)
  Sender: FDA-Public Use
  Company Number: B0709378A

PATIENT
  Sex: Female

DRUGS (2)
  1. MODOPAR [Concomitant]
     Indication: PARKINSON'S DISEASE
     Route: 065
  2. REQUIP [Suspect]
     Indication: PARKINSON'S DISEASE
     Route: 048
     Dates: start: 19980501, end: 20040401

REACTIONS (4)
  - MALAISE [None]
  - PATHOLOGICAL GAMBLING [None]
  - ABNORMAL BEHAVIOUR [None]
  - SUICIDE ATTEMPT [None]
